FAERS Safety Report 21648076 (Version 1)
Quarter: 2022Q4

REPORT INFORMATION
  Report Type: Spontaneous
  Country: US (occurrence: US)
  Receive Date: 20221128
  Receipt Date: 20221128
  Transmission Date: 20230113
  Serious: No
  Sender: FDA-Public Use
  Company Number: US-ELI_LILLY_AND_COMPANY-US202211012914

PATIENT
  Sex: Female

DRUGS (1)
  1. EMGALITY [Suspect]
     Active Substance: GALCANEZUMAB-GNLM
     Indication: Migraine
     Dosage: 120 MG, UNKNOWN
     Route: 065

REACTIONS (5)
  - Injection site pain [Not Recovered/Not Resolved]
  - Injection site irritation [Recovered/Resolved]
  - Injection site pruritus [Unknown]
  - Injection site erythema [Unknown]
  - Injection site haemorrhage [Unknown]
